FAERS Safety Report 13861927 (Version 4)
Quarter: 2018Q3

REPORT INFORMATION
  Report Type: Spontaneous
  Country: US (occurrence: US)
  Receive Date: 20170811
  Receipt Date: 20180925
  Transmission Date: 20181010
  Serious: Yes (Hospitalization)
  Sender: FDA-Public Use
  Company Number: US-ACTELION-A-US2017-157819

PATIENT
  Age: 62 Year
  Sex: Female

DRUGS (1)
  1. OPSUMIT [Suspect]
     Active Substance: MACITENTAN
     Indication: PULMONARY ARTERIAL HYPERTENSION
     Dosage: 10 MG, UNK
     Route: 048
     Dates: start: 20170119, end: 20180907

REACTIONS (5)
  - Hospitalisation [Unknown]
  - Liver disorder [Unknown]
  - Pneumonia [Unknown]
  - Oedema [Unknown]
  - Renal disorder [Unknown]

NARRATIVE: CASE EVENT DATE: 201809
